FAERS Safety Report 10142729 (Version 3)
Quarter: 2018Q1

REPORT INFORMATION
  Report Type: Report from Study
  Country: US (occurrence: US)
  Receive Date: 20140430
  Receipt Date: 20180217
  Transmission Date: 20180508
  Serious: Yes (Other)
  Sender: FDA-Public Use
  Company Number: US-ROCHE-1382898

PATIENT
  Sex: Male
  Weight: 91.1 kg

DRUGS (5)
  1. NUTROPIN AQ [Suspect]
     Active Substance: SOMATROPIN
     Route: 058
  2. CONCERTA [Concomitant]
     Active Substance: METHYLPHENIDATE HYDROCHLORIDE
     Route: 065
  3. OMEGA 3 [Concomitant]
     Active Substance: OMEGA-3 FATTY ACIDS
     Dosage: 5 GUMMIES, ONCE A DAY
     Route: 065
  4. NUTROPIN AQ [Suspect]
     Active Substance: SOMATROPIN
     Dosage: 0.8 MG DAILY ALTERNATING WITH 1.0 MG DAILY.
     Route: 058
     Dates: start: 20140212
  5. NUTROPIN AQ [Suspect]
     Active Substance: SOMATROPIN
     Indication: GROWTH HORMONE DEFICIENCY
     Dosage: EVERY NIGHT AT BEDTIME
     Route: 058
     Dates: end: 20140212

REACTIONS (15)
  - Constipation [Unknown]
  - Acanthosis nigricans [Not Recovered/Not Resolved]
  - Blood cholesterol increased [Unknown]
  - Fatigue [Unknown]
  - Acne [Unknown]
  - Migraine [Unknown]
  - Insulin-like growth factor increased [Unknown]
  - Adipomastia [Unknown]
  - Blood triglycerides increased [Recovering/Resolving]
  - High density lipoprotein decreased [Not Recovered/Not Resolved]
  - Body mass index increased [Unknown]
  - Vitamin D deficiency [Unknown]
  - Blood pressure increased [Not Recovered/Not Resolved]
  - Obesity [Unknown]
  - Low density lipoprotein increased [Recovering/Resolving]
